FAERS Safety Report 26032561 (Version 1)
Quarter: 2025Q4

REPORT INFORMATION
  Report Type: Spontaneous
  Country: US (occurrence: US)
  Receive Date: 20251112
  Receipt Date: 20251112
  Transmission Date: 20260118
  Serious: No
  Sender: ELI LILLY AND COMPANY
  Company Number: US-ELI_LILLY_AND_COMPANY-US202511006848

PATIENT
  Sex: Female

DRUGS (8)
  1. ZEPBOUND [Suspect]
     Active Substance: TIRZEPATIDE
     Indication: Weight control
     Dosage: 5 MG, UNKNOWN
     Route: 065
  2. ZEPBOUND [Suspect]
     Active Substance: TIRZEPATIDE
     Indication: Weight control
     Dosage: 5 MG, UNKNOWN
     Route: 065
  3. ZEPBOUND [Suspect]
     Active Substance: TIRZEPATIDE
     Indication: Obstructive sleep apnoea syndrome
     Dosage: 7.5 MG, UNKNOWN
     Route: 065
     Dates: start: 20240901
  4. ZEPBOUND [Suspect]
     Active Substance: TIRZEPATIDE
     Indication: Obstructive sleep apnoea syndrome
     Dosage: 7.5 MG, UNKNOWN
     Route: 065
     Dates: start: 20240901
  5. ZEPBOUND [Suspect]
     Active Substance: TIRZEPATIDE
     Dosage: 5 MG, UNKNOWN
     Route: 065
  6. ZEPBOUND [Suspect]
     Active Substance: TIRZEPATIDE
     Dosage: 5 MG, UNKNOWN
     Route: 065
  7. FLECAINIDE [Concomitant]
     Active Substance: FLECAINIDE
     Indication: Atrial fibrillation
  8. METOPROLOL SUCCINATE [Concomitant]
     Active Substance: METOPROLOL SUCCINATE
     Indication: Atrial fibrillation

REACTIONS (4)
  - Feeling hot [Recovered/Resolved]
  - Gastrointestinal disorder [Recovered/Resolved]
  - Flushing [Recovered/Resolved]
  - Nausea [Recovered/Resolved]

NARRATIVE: CASE EVENT DATE: 20240901
